FAERS Safety Report 19050534 (Version 1)
Quarter: 2021Q1

REPORT INFORMATION
  Report Type: Spontaneous
  Country: US (occurrence: US)
  Receive Date: 20210323
  Receipt Date: 20210323
  Transmission Date: 20210420
  Serious: No
  Sender: FDA-Public Use
  Company Number: None

PATIENT
  Sex: Female

DRUGS (8)
  1. LOSARTAN 25 MG [Concomitant]
     Active Substance: LOSARTAN
     Dates: start: 20190406
  2. LOVASTATIN  40 MG [Concomitant]
     Active Substance: LOVASTATIN
     Dates: start: 20190322
  3. CARBIDOPA/LEVODOPA [Concomitant]
     Active Substance: CARBIDOPA\LEVODOPA
     Dates: start: 20190215
  4. TERAZOSIN 1 MG [Concomitant]
     Dates: start: 20191227
  5. NUPLAZID [Suspect]
     Active Substance: PIMAVANSERIN TARTRATE
     Indication: PSYCHOTIC DISORDER
     Route: 048
     Dates: start: 20201026, end: 20201130
  6. NUPLAZID [Suspect]
     Active Substance: PIMAVANSERIN TARTRATE
     Indication: PARKINSON^S DISEASE
     Route: 048
     Dates: start: 20201026, end: 20201130
  7. RIVASTIGMINE 4.6MH/24H [Concomitant]
     Dates: start: 20201230
  8. QUETIAPINE 100 MG [Concomitant]
     Active Substance: QUETIAPINE
     Dates: start: 20210121

REACTIONS (1)
  - Hallucination [None]
